FAERS Safety Report 6291853-3 (Version None)
Quarter: 2009Q3

REPORT INFORMATION
  Report Type: 
  Country: None (occurrence: None)
  Receive Date: 20090730
  Receipt Date: 20090724
  Transmission Date: 20100115
  Serious: Yes (Other)
  Sender: FDA-Public Use
  Company Number: US-ASTRAZENECA-2009SE05947

PATIENT
  Sex: Female
  Weight: 83.5 kg

DRUGS (4)
  1. NEXIUM [Suspect]
     Route: 048
  2. NEXIUM [Suspect]
     Route: 048
  3. CLARINEX [Concomitant]
  4. SYNTHROID [Concomitant]

REACTIONS (1)
  - PNEUMONIA [None]
